FAERS Safety Report 4311772-9 (Version None)
Quarter: 2004Q1

REPORT INFORMATION
  Report Type: 
  Country: None (occurrence: None)
  Receive Date: 20040304
  Receipt Date: 20040304
  Transmission Date: 20041129
  Serious: Yes (Life-Threatening)
  Sender: FDA-Public Use
  Company Number: None

PATIENT
  Age: 6 Year
  Sex: Female
  Weight: 22 kg

DRUGS (2)
  1. GAMUNEX [Suspect]
     Indication: KAWASAKI'S DISEASE
     Dosage: 40 GRAMS IV
     Route: 042
     Dates: start: 20040227
  2. ASPIRIN [Concomitant]

REACTIONS (1)
  - HAEMOLYTIC ANAEMIA [None]
